FAERS Safety Report 13291027 (Version 1)
Quarter: 2017Q1

REPORT INFORMATION
  Report Type: Spontaneous
  Country: US (occurrence: US)
  Receive Date: 20170302
  Receipt Date: 20170302
  Transmission Date: 20170428
  Serious: No
  Sender: FDA-Public Use
  Company Number: US-PFIZER INC-2017088650

PATIENT
  Sex: Female

DRUGS (2)
  1. MTX [Concomitant]
     Active Substance: METHOTREXATE SODIUM
     Dosage: UNK
  2. XELJANZ XR [Suspect]
     Active Substance: TOFACITINIB CITRATE
     Indication: INFLAMMATION
     Dosage: 11 MG, DAILY

REACTIONS (9)
  - Pain [Unknown]
  - Family stress [Unknown]
  - Arthralgia [Unknown]
  - Joint swelling [Unknown]
  - Back pain [Unknown]
  - Aggression [Unknown]
  - Headache [Unknown]
  - Constipation [Unknown]
  - Condition aggravated [Unknown]
